FAERS Safety Report 8551216-4 (Version None)
Quarter: 2012Q3

REPORT INFORMATION
  Report Type: 
  Country: None (occurrence: None)
  Receive Date: 20120730
  Receipt Date: 20120403
  Transmission Date: 20120928
  Serious: No
  Sender: FDA-Public Use
  Company Number: US-ALLERGAN-1201269US

PATIENT
  Age: 43 Year
  Sex: Female

DRUGS (4)
  1. LOESTRIN 1.5/30 [Concomitant]
     Indication: CONTRACEPTION
     Dosage: UNK
     Route: 048
  2. LATISSE [Suspect]
     Indication: GROWTH OF EYELASHES
     Dosage: 2 GTT, QPM
     Route: 061
     Dates: start: 20111118
  3. ZOLPIDEM [Concomitant]
     Indication: INSOMNIA
     Dosage: UNK
     Route: 048
  4. LEVONORGESTREL ETHINYL [Concomitant]

REACTIONS (2)
  - PIGMENTATION DISORDER [None]
  - DRUG INEFFECTIVE [None]
